FAERS Safety Report 20757416 (Version 1)
Quarter: 2022Q2

REPORT INFORMATION
  Report Type: Spontaneous
  Country: US (occurrence: None)
  Receive Date: 20220427
  Receipt Date: 20220427
  Transmission Date: 20220721
  Serious: Yes (Hospitalization)
  Sender: FDA-Public Use
  Company Number: None

PATIENT
  Sex: Male

DRUGS (8)
  1. PAXLOVID [Suspect]
     Active Substance: NIRMATRELVIR\RITONAVIR
     Indication: Renal transplant
     Dosage: FREQUENCY : EVERY 12 HOURS;?
     Route: 048
     Dates: start: 20150729
  2. FAMOTIDINE [Concomitant]
     Active Substance: FAMOTIDINE
  3. FISH OIL CAP [Concomitant]
  4. LANTUS SOLOS INJ [Concomitant]
  5. RANITIDINE TAB [Concomitant]
  6. TACROLIMUS [Concomitant]
     Active Substance: TACROLIMUS
  7. TACROLIMUS A [Concomitant]
  8. VITAMIN E [Concomitant]
     Active Substance: .ALPHA.-TOCOPHEROL

REACTIONS (5)
  - Headache [None]
  - Back pain [None]
  - Nausea [None]
  - Tremor [None]
  - Infusion related reaction [None]
